FAERS Safety Report 15611708 (Version 4)
Quarter: 2019Q1

REPORT INFORMATION
  Report Type: Report from Study
  Country: CA (occurrence: CA)
  Receive Date: 20181113
  Receipt Date: 20190226
  Transmission Date: 20190417
  Serious: Yes (Hospitalization)
  Sender: FDA-Public Use
  Company Number: CA-ROCHE-2198182

PATIENT
  Age: 45 Year
  Sex: Female
  Weight: 52.8 kg

DRUGS (16)
  1. BENADRYL [Concomitant]
     Active Substance: DIPHENHYDRAMINE HYDROCHLORIDE
     Dosage: SUBSEQUENT DOSES RECEIVED ON 24/JUL/2012 (WEEK 2), 21/DEC/2012 (WEEK 24), 11/JUN/2013 (WEEK 48), 17/
     Route: 065
     Dates: start: 20120710
  2. LYRICA [Concomitant]
     Active Substance: PREGABALIN
     Indication: NEURALGIA
     Route: 065
     Dates: start: 20121120
  3. PLACEBO [Suspect]
     Active Substance: UNSPECIFIED INGREDIENT
     Indication: RELAPSING-REMITTING MULTIPLE SCLEROSIS
     Dosage: LAST INJECTION ON 24/JUL/2012
     Route: 058
     Dates: start: 20120710
  4. METHYLPREDNISOLONE. [Concomitant]
     Active Substance: METHYLPREDNISOLONE
     Dosage: SUBSEQUENT DOSES RECEIVED ON 24/JUL/2012 (WEEK 2), 21/DEC/2012 (WEEK 24), 11/JUN/2013 (WEEK 48), 17/
     Route: 065
  5. ROBAX PLATINUM [Concomitant]
     Active Substance: IBUPROFEN\METHOCARBAMOL
     Route: 065
     Dates: start: 20130524
  6. OCRELIZUMAB. [Suspect]
     Active Substance: OCRELIZUMAB
     Dosage: WEEK 24 (KIT NUMBER: 407771)?SUBSEQUENT DOSES RECEIVED ON 11/JUN/2013 (WEEK 48, KIT NUMBER: 409527)
     Route: 042
     Dates: start: 20121221
  7. ADVIL [Concomitant]
     Active Substance: IBUPROFEN
     Route: 065
     Dates: start: 20120718, end: 20120718
  8. OCRELIZUMAB. [Suspect]
     Active Substance: OCRELIZUMAB
     Indication: RELAPSING-REMITTING MULTIPLE SCLEROSIS
     Dosage: OLE WEEK 0 (KIT NUMBER: 1128193)?OCRELIZUMAB 600 MG INTRAVENOUS (IV) AS 300 MG INFUSIONS ON DAYS 1 A
     Route: 042
     Dates: start: 20140617
  9. OCRELIZUMAB. [Suspect]
     Active Substance: OCRELIZUMAB
     Dosage: OLE WEEK 24 (KIT NUMBER: 1128193)?SUBSEQUENT DOSE RECEIVED ON 21/MAY/2015 (OLE WEEK 48, KIT NUMBER:
     Route: 042
     Dates: start: 20141201
  10. AMANTADINE. [Concomitant]
     Active Substance: AMANTADINE HYDROCHLORIDE
     Indication: FATIGUE
     Route: 065
     Dates: start: 20140417
  11. TYLENOL [Concomitant]
     Active Substance: ACETAMINOPHEN
     Indication: PROCEDURAL PAIN
     Dosage: SUBSEQUENT DOSES RECEIVED ON 24/JUL/2012 (WEEK 2), 21/DEC/2012 (WEEK 24), 11/JUN/2013 (WEEK 48), 04/
     Route: 065
     Dates: start: 20120710
  12. ELAVIL [Concomitant]
     Active Substance: AMITRIPTYLINE HYDROCHLORIDE
     Route: 065
     Dates: start: 20130610
  13. OCRELIZUMAB. [Suspect]
     Active Substance: OCRELIZUMAB
     Indication: RELAPSING-REMITTING MULTIPLE SCLEROSIS
     Dosage: WEEK 1 (KIT NUMBER: 406952)?ADMINISTERED AS DUAL INFUSION ON DAY 1 AND DAY 15 OF CYCLE 1, FOLLOWED B
     Route: 042
     Dates: start: 20120710
  14. TYLENOL EXTRA STRENGTH [Concomitant]
     Active Substance: ACETAMINOPHEN
     Route: 065
     Dates: start: 20120318
  15. TYLENOL [Concomitant]
     Active Substance: ACETAMINOPHEN
     Indication: PREMEDICATION
     Route: 065
     Dates: start: 20181006, end: 20181011
  16. ADVIL [Concomitant]
     Active Substance: IBUPROFEN
     Route: 065
     Dates: start: 20120719

REACTIONS (1)
  - Neutropenia [Recovered/Resolved]

NARRATIVE: CASE EVENT DATE: 20181005
